FAERS Safety Report 16311462 (Version 3)
Quarter: 2019Q4

REPORT INFORMATION
  Report Type: Report from Study
  Country: DE (occurrence: DE)
  Receive Date: 20190514
  Receipt Date: 20191203
  Transmission Date: 20200122
  Serious: Yes (Death, Hospitalization, Other)
  Sender: FDA-Public Use
  Company Number: DE-PFIZER INC-2019009027

PATIENT
  Age: 71 Year
  Sex: Female

DRUGS (5)
  1. DEXAMETHASONE. [Concomitant]
     Active Substance: DEXAMETHASONE
     Dosage: UNK
  2. CALCILAC [CALCIUM LACTATE] [Concomitant]
     Dosage: UNK
  3. NO SUBJECT DRUG [Suspect]
     Active Substance: UNSPECIFIED INGREDIENT
     Dosage: NO DOSE GIVEN
  4. METHOTREXATE SODIUM. [Suspect]
     Active Substance: METHOTREXATE SODIUM
     Dosage: 15 MG, WEEKLY
     Dates: end: 20181030
  5. BENEPALI [Suspect]
     Active Substance: ETANERCEPT
     Indication: RHEUMATOID ARTHRITIS
     Dosage: 50 MG, WEEKLY
     Route: 058
     Dates: start: 201809, end: 20181030

REACTIONS (6)
  - Sepsis [Fatal]
  - Pneumocystis jirovecii pneumonia [Fatal]
  - Interstitial lung disease [Not Recovered/Not Resolved]
  - Drug eruption [Unknown]
  - Acute respiratory failure [Not Recovered/Not Resolved]
  - Urinary tract infection enterococcal [Unknown]

NARRATIVE: CASE EVENT DATE: 201811
